FAERS Safety Report 13906961 (Version 1)
Quarter: 2017Q3

REPORT INFORMATION
  Report Type: Report from Study
  Country: US (occurrence: BR)
  Receive Date: 20170825
  Receipt Date: 20170825
  Transmission Date: 20171127
  Serious: Yes (Hospitalization)
  Sender: FDA-Public Use
  Company Number: US-SUNOVION-2017SUN003741

PATIENT
  Sex: Female
  Weight: 68 kg

DRUGS (1)
  1. INDACATEROL AND GLYCOPYRROLATE [Suspect]
     Active Substance: GLYCOPYRROLATE\INDACATEROL MALEATE
     Indication: EMPHYSEMA
     Dosage: 1 DF (GLYCOPYRRONIUM BROMIDE 50 OT/INDACATEROL 110 OT)  , QD
     Route: 055

REACTIONS (3)
  - Condition aggravated [Unknown]
  - Respiratory disorder [Unknown]
  - Emphysema [Unknown]
